FAERS Safety Report 9120921 (Version 1)
Quarter: 2013Q1

REPORT INFORMATION
  Report Type: Spontaneous
  Country: JP (occurrence: JP)
  Receive Date: 20130226
  Receipt Date: 20130226
  Transmission Date: 20140127
  Serious: Yes (Life-Threatening, Hospitalization)
  Sender: FDA-Public Use
  Company Number: JP-GLAXOSMITHKLINE-B0868030A

PATIENT
  Age: 32 Year
  Sex: Female

DRUGS (6)
  1. LAMICTAL [Suspect]
     Indication: DEPRESSION
     Dosage: 25MG PER DAY
     Route: 048
     Dates: start: 20110216, end: 20110222
  2. LAMICTAL [Suspect]
     Indication: DEPRESSION
     Dosage: 50MG PER DAY
     Route: 048
     Dates: start: 20110223, end: 20110301
  3. WYPAX [Concomitant]
     Route: 048
  4. MAGLAX [Concomitant]
     Route: 048
  5. GASMOTIN [Concomitant]
     Route: 048
  6. DESYREL [Concomitant]
     Route: 048

REACTIONS (20)
  - Toxic epidermal necrolysis [Recovered/Resolved]
  - Rash [Unknown]
  - Enanthema [Unknown]
  - Stevens-Johnson syndrome [Unknown]
  - Mental status changes [Unknown]
  - Ocular hyperaemia [Unknown]
  - Erythema of eyelid [Unknown]
  - Eye discharge [Unknown]
  - Eyelid erosion [Unknown]
  - Conjunctivitis [Unknown]
  - Oral mucosa erosion [Unknown]
  - Lip erosion [Unknown]
  - Scab [Unknown]
  - Vulval disorder [Unknown]
  - Generalised erythema [Unknown]
  - Skin erosion [Unknown]
  - Pyrexia [Unknown]
  - Lymphadenopathy [Unknown]
  - Epidermal necrosis [Unknown]
  - Dermatitis [Unknown]
